FAERS Safety Report 11429802 (Version 1)
Quarter: 2015Q3

REPORT INFORMATION
  Report Type: Spontaneous
  Country: US (occurrence: US)
  Receive Date: 20150828
  Receipt Date: 20150828
  Transmission Date: 20151125
  Serious: No
  Sender: FDA-Public Use
  Company Number: US-ROCHE-1206671

PATIENT
  Sex: Female

DRUGS (2)
  1. RIBAVIRIN. [Suspect]
     Active Substance: RIBAVIRIN
     Indication: HEPATITIS C
     Route: 065
  2. PEGASYS [Suspect]
     Active Substance: PEGINTERFERON ALFA-2A
     Indication: HEPATITIS C
     Route: 065
     Dates: start: 20130322

REACTIONS (8)
  - Vulvovaginal pruritus [Unknown]
  - Back pain [Recovered/Resolved]
  - Hyperhidrosis [Unknown]
  - Chills [Unknown]
  - Memory impairment [Unknown]
  - Headache [Unknown]
  - Vision blurred [Unknown]
  - Pain in jaw [Unknown]
